FAERS Safety Report 17821478 (Version 1)
Quarter: 2020Q2

REPORT INFORMATION
  Report Type: Report from Study
  Country: PK (occurrence: PK)
  Receive Date: 20200525
  Receipt Date: 20200525
  Transmission Date: 20200714
  Serious: Yes (Hospitalization, Other)
  Sender: FDA-Public Use
  Company Number: PK-ROCHE-2605194

PATIENT
  Age: 22 Year
  Sex: Female
  Weight: 35 kg

DRUGS (1)
  1. RISTOVA [Suspect]
     Active Substance: RITUXIMAB
     Indication: DIFFUSE LARGE B-CELL LYMPHOMA
     Route: 042
     Dates: start: 20171026, end: 201803

REACTIONS (7)
  - Total lung capacity abnormal [Unknown]
  - Abdominal pain [Unknown]
  - Gastric perforation [Unknown]
  - Haemoglobin abnormal [Unknown]
  - Constipation [Unknown]
  - Vomiting [Unknown]
  - Platelet count decreased [Unknown]

NARRATIVE: CASE EVENT DATE: 20171106
